FAERS Safety Report 10329962 (Version 4)
Quarter: 2015Q1

REPORT INFORMATION
  Report Type: Spontaneous
  Country: BR (occurrence: BR)
  Receive Date: 20140721
  Receipt Date: 20150113
  Transmission Date: 20150720
  Serious: No
  Sender: FDA-Public Use
  Company Number: BR-GLAXOSMITHKLINE-A1081964A

PATIENT
  Age: 7 Year
  Sex: Female

DRUGS (4)
  1. ANTAK [Concomitant]
     Active Substance: RANITIDINE HYDROCHLORIDE
  2. ZINACEF [Suspect]
     Active Substance: CEFUROXIME SODIUM
     Indication: PREOPERATIVE CARE
     Route: 065
     Dates: start: 20140612
  3. TYLENOL [Concomitant]
     Active Substance: ACETAMINOPHEN
  4. DRAMAMINE [Concomitant]
     Active Substance: DIMENHYDRINATE

REACTIONS (7)
  - Urticaria [Unknown]
  - Face oedema [Unknown]
  - Pruritus [Unknown]
  - Erythema [Unknown]
  - Product quality issue [Unknown]
  - Abdominal distension [Unknown]
  - Skin plaque [Unknown]

NARRATIVE: CASE EVENT DATE: 20140612
